FAERS Safety Report 4672458-4 (Version None)
Quarter: 2005Q2

REPORT INFORMATION
  Report Type: 
  Country: None (occurrence: None)
  Receive Date: 20050523
  Receipt Date: 20050512
  Transmission Date: 20051028
  Serious: Yes (Hospitalization)
  Sender: FDA-Public Use
  Company Number: 2005AL001796

PATIENT
  Age: 37 Year
  Sex: Female
  Weight: 61.2356 kg

DRUGS (1)
  1. ACETASOL HC [Suspect]
     Indication: EAR INFECTION
     Dosage: QD; TYMPANIC
     Dates: start: 20050508, end: 20050508

REACTIONS (3)
  - AURICULAR SWELLING [None]
  - CEREBROVASCULAR ACCIDENT [None]
  - ERYTHEMA [None]
